FAERS Safety Report 8905393 (Version 1)
Quarter: 2012Q4

REPORT INFORMATION
  Report Type: 
  Country: DE (occurrence: DE)
  Receive Date: 20121112
  Receipt Date: 20121112
  Transmission Date: 20130627
  Serious: Yes (Other)
  Sender: FDA-Public Use
  Company Number: DE-JNJFOC-20121100805

PATIENT
  Age: 36 Year
  Sex: Female
  Weight: 72 kg

DRUGS (3)
  1. RISPERDAL [Suspect]
     Indication: PRODUCT USED FOR UNKNOWN INDICATION
     Dosage: 2mg-56 tablets
     Route: 048
     Dates: start: 20121102, end: 20121102
  2. RISPERDAL [Suspect]
     Indication: PRODUCT USED FOR UNKNOWN INDICATION
     Route: 048
  3. RISPERDAL [Suspect]
     Indication: PRODUCT USED FOR UNKNOWN INDICATION
     Dosage: 3mg-56 tablets
     Route: 048
     Dates: start: 20121102, end: 20121102

REACTIONS (6)
  - Suicide attempt [Unknown]
  - Somnolence [Unknown]
  - Tachycardia [Unknown]
  - Dysarthria [Unknown]
  - Overdose [Unknown]
  - Hypotension [Unknown]
